FAERS Safety Report 25074058 (Version 1)
Quarter: 2025Q1

REPORT INFORMATION
  Report Type: Spontaneous
  Country: US (occurrence: US)
  Receive Date: 20250313
  Receipt Date: 20250313
  Transmission Date: 20250408
  Serious: Yes (Other)
  Sender: HIKMA
  Company Number: US-HIKMA PHARMACEUTICALS USA INC.-US-H14001-25-02205

PATIENT
  Sex: Female

DRUGS (5)
  1. AMIKACIN [Suspect]
     Active Substance: AMIKACIN
     Indication: Product used for unknown indication
     Route: 042
     Dates: start: 20240412, end: 202410
  2. IMIPENEM [Suspect]
     Active Substance: IMIPENEM
     Indication: Product used for unknown indication
     Route: 042
     Dates: start: 20240412, end: 202410
  3. LINEZOLID [Suspect]
     Active Substance: LINEZOLID
     Indication: Product used for unknown indication
     Route: 065
     Dates: end: 202410
  4. OMADACYCLINE [Suspect]
     Active Substance: OMADACYCLINE
     Indication: Product used for unknown indication
     Route: 065
  5. TIGECYCLINE [Suspect]
     Active Substance: TIGECYCLINE
     Indication: Product used for unknown indication
     Route: 042
     Dates: start: 20240412

REACTIONS (4)
  - Acute kidney injury [Unknown]
  - Drug-induced liver injury [Unknown]
  - Lung disorder [Unknown]
  - Nausea [Unknown]
